FAERS Safety Report 6117784-7 (Version None)
Quarter: 2009Q1

REPORT INFORMATION
  Report Type: 
  Country: None (occurrence: None)
  Receive Date: 20090314
  Receipt Date: 20090128
  Transmission Date: 20090719
  Serious: No
  Sender: FDA-Public Use
  Company Number: US-ABBOTT-09P-163-0500622-00

PATIENT
  Sex: Female
  Weight: 124.85 kg

DRUGS (16)
  1. HUMIRA [Suspect]
     Indication: RHEUMATOID ARTHRITIS
     Dates: start: 20081001
  2. LASIX [Concomitant]
     Indication: CHRONIC OBSTRUCTIVE PULMONARY DISEASE
  3. VICODIN [Concomitant]
     Indication: PAIN
     Dosage: 10/325
  4. MILK THISTLE [Concomitant]
     Indication: DRUG USE FOR UNKNOWN INDICATION
  5. FLEXERIL [Concomitant]
     Indication: DRUG USE FOR UNKNOWN INDICATION
  6. ZINC [Concomitant]
     Indication: DRUG USE FOR UNKNOWN INDICATION
  7. SELENIUM [Concomitant]
     Indication: DRUG USE FOR UNKNOWN INDICATION
  8. PROVENTIL [Concomitant]
     Indication: DRUG USE FOR UNKNOWN INDICATION
     Route: 055
  9. ATROVENT [Concomitant]
     Indication: DRUG USE FOR UNKNOWN INDICATION
     Route: 055
  10. COLACE [Concomitant]
     Indication: DRUG USE FOR UNKNOWN INDICATION
  11. COMPLEX B [Concomitant]
     Indication: DRUG USE FOR UNKNOWN INDICATION
     Dosage: 1 DOPPER EVERY DAY
  12. MUCINEX [Concomitant]
     Indication: DRUG USE FOR UNKNOWN INDICATION
  13. AFRIN [Concomitant]
     Indication: DRUG USE FOR UNKNOWN INDICATION
     Dosage: NASAL SPRAY
     Route: 045
  14. CLARITIN [Concomitant]
     Indication: DRUG USE FOR UNKNOWN INDICATION
  15. IBUPROFEN [Concomitant]
     Indication: DRUG USE FOR UNKNOWN INDICATION
  16. MIRALAX [Concomitant]
     Indication: DRUG USE FOR UNKNOWN INDICATION

REACTIONS (4)
  - ARTHRALGIA [None]
  - JOINT LOCK [None]
  - JOINT SWELLING [None]
  - SLEEP APNOEA SYNDROME [None]
